FAERS Safety Report 25751716 (Version 1)
Quarter: 2025Q3

REPORT INFORMATION
  Report Type: Spontaneous
  Country: US (occurrence: None)
  Receive Date: 20250901
  Receipt Date: 20250901
  Transmission Date: 20251021
  Serious: No
  Sender: FDA-CTU
  Company Number: None

PATIENT
  Age: 37 Year
  Sex: Female
  Weight: 92.25 kg

DRUGS (10)
  1. ATORVASTATIN CALCIUM [Suspect]
     Active Substance: ATORVASTATIN CALCIUM
     Indication: Hyperlipidaemia
     Dosage: 1 TABLET AT BEDTIME ORAL?
     Route: 048
     Dates: start: 20250609, end: 20250829
  2. VALACYCLOVIR [Suspect]
     Active Substance: VALACYCLOVIR HYDROCHLORIDE
  3. PREDNISOLONE [Suspect]
     Active Substance: PREDNISOLONE
  4. METFORMIN [Concomitant]
     Active Substance: METFORMIN HYDROCHLORIDE
  5. VALACYCLOVIR [Concomitant]
     Active Substance: VALACYCLOVIR HYDROCHLORIDE
  6. PREDNISONE [Concomitant]
     Active Substance: PREDNISONE
  7. UNSPECIFIED INGREDIENT [Concomitant]
     Active Substance: UNSPECIFIED INGREDIENT
  8. ATORVASTATIN [Concomitant]
     Active Substance: ATORVASTATIN
  9. TYLENOL [Concomitant]
     Active Substance: ACETAMINOPHEN
  10. ibuprofenq [Concomitant]

REACTIONS (14)
  - Myalgia [None]
  - Arthralgia [None]
  - Chest pain [None]
  - Product dose omission in error [None]
  - Pain [None]
  - Paraesthesia [None]
  - Dizziness [None]
  - Nausea [None]
  - Dyspnoea [None]
  - Pain in jaw [None]
  - Lymphadenopathy [None]
  - Therapy cessation [None]
  - Hot flush [None]
  - Dry mouth [None]

NARRATIVE: CASE EVENT DATE: 20250804
